FAERS Safety Report 14480698 (Version 1)
Quarter: 2018Q1

REPORT INFORMATION
  Report Type: Spontaneous
  Country: CN (occurrence: CN)
  Receive Date: 20180202
  Receipt Date: 20180202
  Transmission Date: 20180509
  Serious: Yes (Hospitalization, Other)
  Sender: FDA-Public Use
  Company Number: CN-PFIZER INC-2018041413

PATIENT
  Age: 48 Year
  Sex: Female
  Weight: 60 kg

DRUGS (4)
  1. GLUCOSE [Concomitant]
     Active Substance: DEXTROSE
     Indication: VEHICLE SOLUTION USE
     Dosage: 500 ML, 1X/DAY
     Route: 041
     Dates: start: 20171102, end: 20171104
  2. SODIUM CHLORIDE. [Concomitant]
     Active Substance: SODIUM CHLORIDE
     Indication: VEHICLE SOLUTION USE
     Dosage: 100 ML, 1X/DAY
     Route: 041
     Dates: start: 20171102, end: 20171102
  3. PHARMORUBICIN [Suspect]
     Active Substance: EPIRUBICIN
     Indication: CHEMOTHERAPY
     Dosage: 90 MG, 1X/DAY
     Route: 041
     Dates: start: 20171102, end: 20171102
  4. PI FU PING [Suspect]
     Active Substance: IFOSFAMIDE
     Indication: CHEMOTHERAPY
     Dosage: 2 G, 1X/DAY
     Route: 041
     Dates: start: 20171102, end: 20171104

REACTIONS (7)
  - Micturition urgency [Unknown]
  - Abdominal discomfort [Recovered/Resolved]
  - Dysuria [Unknown]
  - Bacterial test positive [Recovered/Resolved]
  - Haemoglobin decreased [None]
  - Neutrophil count decreased [Recovering/Resolving]
  - Haematuria [Unknown]

NARRATIVE: CASE EVENT DATE: 20171102
